FAERS Safety Report 5884176-5 (Version None)
Quarter: 2008Q3

REPORT INFORMATION
  Report Type: 
  Country: None (occurrence: None)
  Receive Date: 20080915
  Receipt Date: 20080909
  Transmission Date: 20090109
  Serious: Yes (Other)
  Sender: FDA-Public Use
  Company Number: US-JNJCH-2008023355

PATIENT
  Age: 26 Year
  Sex: Female
  Weight: 90.7 kg

DRUGS (1)
  1. LUDENS THROAT DROPS WILD CHERRY [Suspect]
     Indication: DRUG USE FOR UNKNOWN INDICATION
     Dosage: TEXT:1 DROP
     Route: 048

REACTIONS (2)
  - JAW FRACTURE [None]
  - TOOTH DISORDER [None]
